FAERS Safety Report 4433049-3 (Version None)
Quarter: 2004Q3

REPORT INFORMATION
  Report Type: 
  Country: None (occurrence: None)
  Receive Date: 20040721
  Receipt Date: 20030708
  Transmission Date: 20050211
  Serious: Yes (Hospitalization)
  Sender: FDA-Public Use
  Company Number: WAES0307USA01107

PATIENT
  Age: 52 Year
  Sex: Female

DRUGS (2)
  1. VIOXX [Suspect]
     Indication: RHEUMATOID ARTHRITIS
     Dosage: 50 MG/ DAILY/ PO
     Route: 048
     Dates: start: 20021202, end: 20030101
  2. NONSTEROIDAL ANTI-INFLAMMATORY [Concomitant]

REACTIONS (1)
  - NEPHRITIS INTERSTITIAL [None]
